FAERS Safety Report 9322624 (Version 2)
Quarter: 2013Q4

REPORT INFORMATION
  Report Type: Spontaneous
  Country: US (occurrence: US)
  Receive Date: 20130531
  Receipt Date: 20131220
  Transmission Date: 20140711
  Serious: Yes (Hospitalization)
  Sender: FDA-Public Use
  Company Number: US-B.I. PHARMACEUTICALS,INC./RIDGEFIELD-2013-BI-14708BP

PATIENT
  Age: 63 Year
  Sex: Male
  Weight: 93.99 kg

DRUGS (8)
  1. PRADAXA [Suspect]
     Indication: ATRIAL FIBRILLATION
     Dosage: 150 MG
     Route: 048
     Dates: start: 20110209, end: 20111105
  2. ASPIRIN [Concomitant]
     Dosage: 81 MG
     Route: 048
  3. NORVASC [Concomitant]
     Dosage: 10 MG
     Route: 048
  4. AMIODARONE [Concomitant]
     Dosage: 400 MG
     Route: 048
  5. SYNTHROID [Concomitant]
     Dosage: 225 MCG
     Route: 048
  6. LIPITOR [Concomitant]
     Dosage: 20 MG
     Route: 048
  7. TRICOR [Concomitant]
     Dosage: 160 MG
     Route: 048
  8. QUINAPRIL [Concomitant]
     Dosage: 160 MG
     Route: 048

REACTIONS (3)
  - Cerebral haemorrhage [Unknown]
  - Subdural haematoma [Unknown]
  - Ischaemic stroke [Unknown]
